FAERS Safety Report 18876926 (Version 2)
Quarter: 2021Q1

REPORT INFORMATION
  Report Type: Spontaneous
  Country: NP (occurrence: NP)
  Receive Date: 20210210
  Receipt Date: 20210301
  Transmission Date: 20210420
  Serious: Yes (Other)
  Sender: FDA-Public Use
  Company Number: NP-BAUSCH-BL-2021-003936

PATIENT
  Age: 67 Year
  Sex: Male

DRUGS (9)
  1. PREDNISOLONE. [Suspect]
     Active Substance: PREDNISOLONE
     Route: 048
  2. AZATHIOPRINE. [Suspect]
     Active Substance: AZATHIOPRINE
     Indication: PEMPHIGUS
     Route: 065
  3. PREDNISOLONE. [Suspect]
     Active Substance: PREDNISOLONE
     Indication: PEMPHIGUS
     Dosage: ORAL STEROID
     Route: 048
  4. DOXYCYCLINE. [Concomitant]
     Active Substance: DOXYCYCLINE
     Indication: PEMPHIGUS
  5. DEXAMETHASONE. [Suspect]
     Active Substance: DEXAMETHASONE
     Dosage: INCREASED DOSE, OVER THE NEXT 2 WEEKS, TOTAL 6 WEEKS OF OF ADMINISTRATION OF DEXAMETHASONE
     Route: 042
  6. PREDNISOLONE. [Suspect]
     Active Substance: PREDNISOLONE
     Dosage: MONTHLY TAPERING OF THE DOSE
     Route: 048
  7. PREDNISOLONE. [Suspect]
     Active Substance: PREDNISOLONE
     Route: 048
  8. NICOTINAMIDE [Concomitant]
     Active Substance: NIACINAMIDE
     Indication: PEMPHIGUS
  9. DEXAMETHASONE. [Suspect]
     Active Substance: DEXAMETHASONE
     Indication: PEMPHIGUS
     Route: 042

REACTIONS (1)
  - Kaposi^s varicelliform eruption [Recovered/Resolved]
